FAERS Safety Report 21169209 (Version 2)
Quarter: 2022Q4

REPORT INFORMATION
  Report Type: Spontaneous
  Country: US (occurrence: US)
  Receive Date: 20220804
  Receipt Date: 20221123
  Transmission Date: 20230113
  Serious: No
  Sender: FDA-Public Use
  Company Number: US-JNJFOC-20220755351

PATIENT
  Sex: Male

DRUGS (1)
  1. SIRTURO [Suspect]
     Active Substance: BEDAQUILINE FUMARATE
     Indication: Product used for unknown indication
     Route: 048

REACTIONS (1)
  - Dysphagia [Unknown]
